FAERS Safety Report 9217973 (Version 1)
Quarter: 2013Q2

REPORT INFORMATION
  Report Type: Spontaneous
  Country: US (occurrence: US)
  Receive Date: 20130408
  Receipt Date: 20130408
  Transmission Date: 20140414
  Serious: Yes (Other)
  Sender: FDA-Public Use
  Company Number: US-PFIZER INC-2013108929

PATIENT
  Age: 48 Year
  Sex: Female
  Weight: 53.52 kg

DRUGS (11)
  1. NEURONTIN [Suspect]
     Indication: NEUROPATHY PERIPHERAL
     Dosage: 600 MG, 3X/DAY
     Route: 048
  2. LANTUS [Concomitant]
     Indication: DIABETES MELLITUS
     Dosage: UNK, 1X/DAY
  3. APIDRA [Concomitant]
     Dosage: 7 IU, UNK
  4. PAXIL [Concomitant]
     Dosage: 30 MG, UNK
  5. BABY ASPIRIN [Concomitant]
     Dosage: 80 MG, UNK
  6. NAPROXEN [Concomitant]
     Dosage: 500 MG, 2X/DAY
  7. LISINOPRIL [Concomitant]
     Indication: HYPERTENSION
     Dosage: 5 MG, 1X/DAY
  8. PRAVASTATIN [Concomitant]
     Indication: BLOOD CHOLESTEROL INCREASED
     Dosage: 20 MG, 1X/DAY
  9. VITAMIN D [Concomitant]
     Dosage: UNK
  10. MAGNESIUM [Concomitant]
     Dosage: UNK
  11. CYMBALTA [Concomitant]
     Dosage: UNK

REACTIONS (3)
  - Glycosylated haemoglobin increased [Unknown]
  - Neuropathy peripheral [Unknown]
  - Off label use [Unknown]
